FAERS Safety Report 9982540 (Version 1)
Quarter: 2014Q1

REPORT INFORMATION
  Report Type: Report from Study
  Country: US (occurrence: US)
  Receive Date: 20140307
  Receipt Date: 20140307
  Transmission Date: 20141002
  Serious: No
  Sender: FDA-Public Use
  Company Number: US-ABBVIE-13P-163-1179709-00

PATIENT
  Age: 54 Year
  Sex: Female

DRUGS (2)
  1. HUMIRA [Suspect]
     Indication: PSORIATIC ARTHROPATHY
  2. HUMIRA [Suspect]

REACTIONS (4)
  - Onychalgia [Recovering/Resolving]
  - Nail disorder [Recovering/Resolving]
  - Joint swelling [Recovering/Resolving]
  - Toothache [Not Recovered/Not Resolved]
